FAERS Safety Report 8075660-7 (Version None)
Quarter: 2012Q1

REPORT INFORMATION
  Report Type: 
  Country: None (occurrence: None)
  Receive Date: 20120127
  Receipt Date: 20120119
  Transmission Date: 20120608
  Serious: Yes (Other)
  Sender: FDA-Public Use
  Company Number: US-PURDUE-USA-2011-0063204

PATIENT
  Sex: Female

DRUGS (2)
  1. OXYCONTIN [Suspect]
     Indication: PAIN
     Dosage: 80 MG, TID
     Route: 048
     Dates: start: 20101101
  2. OXYCONTIN [Suspect]
     Indication: NEURALGIA

REACTIONS (7)
  - INTESTINAL OBSTRUCTION [None]
  - HEADACHE [None]
  - ABDOMINAL PAIN UPPER [None]
  - DIPLOPIA [None]
  - DYSPEPSIA [None]
  - ABDOMINAL DISCOMFORT [None]
  - BALANCE DISORDER [None]
